FAERS Safety Report 4831523-9 (Version None)
Quarter: 2005Q4

REPORT INFORMATION
  Report Type: 
  Country: None (occurrence: None)
  Receive Date: 20051116
  Receipt Date: 20051110
  Transmission Date: 20060501
  Serious: No
  Sender: FDA-Public Use
  Company Number: TAP2005Q01985

PATIENT
  Age: 86 Year
  Sex: Female
  Weight: 59.1 kg

DRUGS (6)
  1. PREVACID [Suspect]
     Indication: ARTHRITIS
     Dosage: 1 CARD, 1 IN 1 WK, PER ORAL
     Route: 048
     Dates: start: 20051010, end: 20051018
  2. PREVACID [Suspect]
     Indication: PROPHYLAXIS AGAINST GASTROINTESTINAL ULCER
     Dosage: 1 CARD, 1 IN 1 WK, PER ORAL
     Route: 048
     Dates: start: 20051010, end: 20051018
  3. PREVACID [Suspect]
     Indication: ARTHRITIS
     Dosage: 1 CARD, 1 IN 1 WK, PER ORAL
     Route: 048
     Dates: start: 20051103
  4. PREVACID [Suspect]
     Indication: PROPHYLAXIS AGAINST GASTROINTESTINAL ULCER
     Dosage: 1 CARD, 1 IN 1 WK, PER ORAL
     Route: 048
     Dates: start: 20051103
  5. ATENOLOL [Concomitant]
  6. PROTONIX [Concomitant]

REACTIONS (2)
  - ABDOMINAL DISTENSION [None]
  - DIPLOPIA [None]
